FAERS Safety Report 10502104 (Version 1)
Quarter: 2014Q4

REPORT INFORMATION
  Report Type: Spontaneous
  Country: US (occurrence: US)
  Receive Date: 20141007
  Receipt Date: 20141007
  Transmission Date: 20150528
  Serious: Yes (Hospitalization)
  Sender: FDA-Public Use
  Company Number: US-BIOMARINAP-US-2014-104267

PATIENT
  Age: 17 Year
  Sex: Female

DRUGS (1)
  1. NAGLAZYME [Suspect]
     Active Substance: GALSULFASE
     Indication: MUCOPOLYSACCHARIDOSIS
     Dosage: 25 MG, QW
     Route: 042
     Dates: start: 20110417

REACTIONS (1)
  - Spinal cord operation [Unknown]

NARRATIVE: CASE EVENT DATE: 20140918
